FAERS Safety Report 18146181 (Version 2)
Quarter: 2020Q3

REPORT INFORMATION
  Report Type: Spontaneous
  Country: IT (occurrence: IT)
  Receive Date: 20200813
  Receipt Date: 20200910
  Transmission Date: 20201103
  Serious: Yes (Death, Life-Threatening, Hospitalization, Other)
  Sender: FDA-Public Use
  Company Number: IT-HIKMA PHARMACEUTICALS USA INC.-IT-H14001-20-51888

PATIENT
  Age: 49 Year
  Sex: Female
  Weight: 50 kg

DRUGS (7)
  1. METHYLPREDNISOLONE. [Suspect]
     Active Substance: METHYLPREDNISOLONE
     Indication: ANTIPHOSPHOLIPID SYNDROME
     Route: 065
     Dates: start: 2018, end: 2018
  2. MYCOPHENOLATE MOFETIL. [Suspect]
     Active Substance: MYCOPHENOLATE MOFETIL
     Indication: NEPHROTIC SYNDROME
     Route: 065
  3. MYCOPHENOLATE MOFETIL. [Suspect]
     Active Substance: MYCOPHENOLATE MOFETIL
     Indication: SYSTEMIC LUPUS ERYTHEMATOSUS
     Route: 048
     Dates: start: 20180408, end: 20180519
  4. MYCOPHENOLATE MOFETIL. [Suspect]
     Active Substance: MYCOPHENOLATE MOFETIL
     Indication: ANTIPHOSPHOLIPID SYNDROME
  5. PREDNISONE. [Suspect]
     Active Substance: PREDNISONE
     Indication: NEPHROTIC SYNDROME
     Route: 048
     Dates: start: 20180301
  6. PREDNISONE. [Suspect]
     Active Substance: PREDNISONE
     Indication: IMMUNOSUPPRESSANT DRUG THERAPY
     Route: 048
     Dates: end: 20180519
  7. PREDNISONE. [Suspect]
     Active Substance: PREDNISONE
     Indication: SYSTEMIC LUPUS ERYTHEMATOSUS

REACTIONS (10)
  - Hyperglycaemia [Fatal]
  - Multiple organ dysfunction syndrome [Fatal]
  - Varicella zoster virus infection [Fatal]
  - Viral pharyngitis [Fatal]
  - Hepatic haemorrhage [Fatal]
  - Hypotension [Unknown]
  - Disseminated intravascular coagulation [Unknown]
  - Respiratory distress [Fatal]
  - Hepatic necrosis [Fatal]
  - Acute kidney injury [Fatal]

NARRATIVE: CASE EVENT DATE: 20180519
